FAERS Safety Report 24084319 (Version 1)
Quarter: 2024Q3

REPORT INFORMATION
  Report Type: Spontaneous
  Country: US (occurrence: None)
  Receive Date: 20240711
  Receipt Date: 20240711
  Transmission Date: 20241017
  Serious: Yes (Life-Threatening)
  Sender: Public
  Company Number: None

PATIENT
  Age: 74 Year
  Sex: Male

DRUGS (1)
  1. REPATHA [Suspect]
     Active Substance: EVOLOCUMAB
     Indication: Myocardial ischaemia
     Dosage: FREQUENCY : EVERY OTHER WEEK;?

REACTIONS (5)
  - Staphylococcal infection [None]
  - Staphylococcal sepsis [None]
  - Pulmonary oedema [None]
  - Pyrexia [None]
  - Cerebrovascular accident [None]
